FAERS Safety Report 8059898-0 (Version None)
Quarter: 2012Q1

REPORT INFORMATION
  Report Type: 
  Country: None (occurrence: None)
  Receive Date: 20120120
  Receipt Date: 20120115
  Transmission Date: 20120608
  Serious: Yes (Other)
  Sender: FDA-Public Use
  Company Number: GB-JNJFOC-20120106308

PATIENT

DRUGS (2)
  1. REGAINE EXTRA STRENGTH 5% [Suspect]
     Route: 065
  2. REGAINE EXTRA STRENGTH 5% [Suspect]
     Indication: PRODUCT USED FOR UNKNOWN INDICATION
     Route: 065

REACTIONS (2)
  - VISUAL ACUITY REDUCED [None]
  - OPTIC ATROPHY [None]
